FAERS Safety Report 10243008 (Version 1)
Quarter: 2014Q2

REPORT INFORMATION
  Report Type: Report from Study
  Country: CO (occurrence: CO)
  Receive Date: 20140618
  Receipt Date: 20140618
  Transmission Date: 20141212
  Serious: Yes (Death, Hospitalization)
  Sender: FDA-Public Use
  Company Number: CO-BRISTOL-MYERS SQUIBB COMPANY-21017736

PATIENT
  Sex: Female

DRUGS (2)
  1. APIXABAN [Suspect]
     Dosage: INITERRUPTED ON 08-JUN-2014
     Dates: start: 20140530
  2. ISOSORBIDE DINITRATE [Concomitant]

REACTIONS (1)
  - Infarction [Fatal]
